FAERS Safety Report 4449426-0 (Version None)
Quarter: 2004Q3

REPORT INFORMATION
  Report Type: 
  Country: None (occurrence: None)
  Receive Date: 20040908
  Receipt Date: 20040823
  Transmission Date: 20050211
  Serious: Yes (Other)
  Sender: FDA-Public Use
  Company Number: B0343220A

PATIENT
  Sex: 0

DRUGS (3)
  1. AGENERASE [Suspect]
     Indication: HIV INFECTION
     Dosage: TWICE PER DAY / ORAL
     Route: 048
  2. RITONAVIR CAPSULE (RITONAVIR) [Suspect]
     Indication: HIV INFECTION
     Dosage: TWICE PER DAY / ORAL
     Route: 048
  3. SAQUINAVIR CAPSULE (SAQUINAVIR) [Suspect]
     Indication: HIV INFECTION
     Dosage: SEE DOSAGE TEXT / ORAL
     Route: 048

REACTIONS (3)
  - ALANINE AMINOTRANSFERASE INCREASED [None]
  - ASPARTATE AMINOTRANSFERASE INCREASED [None]
  - HEPATOTOXICITY [None]
